FAERS Safety Report 26217787 (Version 1)
Quarter: 2025Q4

REPORT INFORMATION
  Report Type: Spontaneous
  Country: ET (occurrence: ET)
  Receive Date: 20251231
  Receipt Date: 20251231
  Transmission Date: 20260118
  Serious: Yes (Life-Threatening, Hospitalization)
  Sender: SANDOZ
  Company Number: ET-002147023-NVSC2025ET198041

PATIENT
  Age: 23 Year
  Sex: Male

DRUGS (2)
  1. AMLODIPINE [Suspect]
     Active Substance: AMLODIPINE BESYLATE
     Indication: Product used for unknown indication
     Dosage: 10 MG (INTENTIONAL INGESTION OF MORE THAN 30 TABLETS OF AMLODIPINE 10MG (ESTIMATED TO BE MORE THAN EQUAL TO 300MG))
  2. DICLOFENAC [Suspect]
     Active Substance: DICLOFENAC
     Indication: Product used for unknown indication
     Dosage: 50 MG (UNSPECIFIED QUANTITY OF DICLOFENAC 50MG)

REACTIONS (11)
  - Bradyarrhythmia [Recovering/Resolving]
  - Non-cardiogenic pulmonary oedema [Recovering/Resolving]
  - Cellulitis [Unknown]
  - Suicide attempt [Unknown]
  - Respiratory distress [Recovering/Resolving]
  - Vomiting [Unknown]
  - Bradycardia [Unknown]
  - Acute kidney injury [Recovering/Resolving]
  - Hypotension [Recovering/Resolving]
  - Intentional overdose [Recovering/Resolving]
  - Sepsis [Unknown]
